FAERS Safety Report 24953978 (Version 1)
Quarter: 2025Q1

REPORT INFORMATION
  Report Type: Spontaneous
  Country: KR (occurrence: KR)
  Receive Date: 20250211
  Receipt Date: 20250211
  Transmission Date: 20250409
  Serious: No
  Sender: ALKEM
  Company Number: KR-ALKEM LABORATORIES LIMITED-KR-ALKEM-2024-17589

PATIENT
  Age: 81 Year
  Sex: Male

DRUGS (2)
  1. TRIAMCINOLONE ACETONIDE [Suspect]
     Active Substance: TRIAMCINOLONE ACETONIDE
     Indication: Retinopathy
     Route: 065
  2. NIVOLUMAB [Concomitant]
     Active Substance: NIVOLUMAB
     Indication: Lung neoplasm malignant
     Route: 065

REACTIONS (1)
  - Therapy partial responder [Unknown]
